FAERS Safety Report 8780227 (Version 1)
Quarter: 2012Q4

REPORT INFORMATION
  Report Type: 
  Country: US (occurrence: None)
  Receive Date: 20120904
  Receipt Date: 20120904
  Transmission Date: 20130627
  Serious: Yes (Death, Hospitalization)
  Sender: FDA-Public Use
  Company Number: None

PATIENT
  Sex: Female
  Weight: 87.9 kg

DRUGS (2)
  1. CYTARABINE [Suspect]
     Dates: end: 20120717
  2. MITOXANTRONE HYDROCHLORIDE [Suspect]
     Dates: end: 20120719

REACTIONS (5)
  - Haemoptysis [None]
  - Pulmonary haemorrhage [None]
  - Bronchopulmonary aspergillosis [None]
  - Post procedural complication [None]
  - Pancytopenia [None]
